FAERS Safety Report 6031632-5 (Version None)
Quarter: 2009Q1

REPORT INFORMATION
  Report Type: 
  Country: None (occurrence: None)
  Receive Date: 20090108
  Receipt Date: 20081231
  Transmission Date: 20090719
  Serious: Yes (Hospitalization)
  Sender: FDA-Public Use
  Company Number: US-ELI_LILLY_AND_COMPANY-US200706004150

PATIENT
  Sex: Male
  Weight: 75.283 kg

DRUGS (19)
  1. BYETTA [Suspect]
     Indication: TYPE 2 DIABETES MELLITUS
     Dosage: 10 UG, 2/D
     Route: 058
     Dates: start: 20060201
  2. BYETTA [Suspect]
     Dosage: 10 UG, 2/D
     Route: 058
     Dates: start: 20060101
  3. BYETTA [Suspect]
     Dosage: 5 UG, EACH EVENING
     Route: 058
     Dates: start: 20060901
  4. BYETTA [Suspect]
     Dosage: 10 UG, EACH MORNING
     Route: 058
     Dates: start: 20060901
  5. GLUCOPHAGE [Concomitant]
     Indication: TYPE 2 DIABETES MELLITUS
     Dosage: 500 MG, 2/D
     Route: 048
  6. GLYBURIDE [Concomitant]
     Indication: TYPE 2 DIABETES MELLITUS
     Dosage: 12 MG, DAILY (1/D)
     Route: 048
  7. COREG [Concomitant]
     Indication: BLOOD PRESSURE INCREASED
     Dosage: 25 MG, 2/D
     Route: 048
  8. ASPIRIN [Concomitant]
     Indication: CARDIAC DISORDER
     Dosage: 325 MG, DAILY (1/D)
     Route: 048
  9. LISINOPRIL [Concomitant]
     Indication: BLOOD PRESSURE INCREASED
     Dosage: 40 MG, DAILY (1/D)
     Route: 048
     Dates: start: 20020101
  10. LIPITOR [Concomitant]
     Indication: BLOOD CHOLESTEROL INCREASED
     Dosage: 40 MG, DAILY (1/D)
     Route: 048
     Dates: start: 19950101, end: 20081101
  11. ENABLEX                            /01760402/ [Concomitant]
     Indication: BLADDER DISORDER
     Dosage: UNK, UNKNOWN
  12. SIMVASTATIN [Concomitant]
     Indication: BLOOD CHOLESTEROL INCREASED
     Dates: start: 20081101
  13. ZETIA [Concomitant]
     Indication: BLOOD CHOLESTEROL INCREASED
  14. PLAVIX [Concomitant]
     Dosage: 75 MG, 2/D
     Dates: start: 20080901
  15. TRICOR [Concomitant]
     Indication: BLOOD CHOLESTEROL INCREASED
  16. TRAZODONE HCL [Concomitant]
     Indication: SLEEP DISORDER
     Dosage: 150 MG, AS NEEDED
  17. TETRABENAZINE [Concomitant]
  18. ASACOL [Concomitant]
  19. IMDUR [Concomitant]
     Dosage: UNK, AS NEEDED

REACTIONS (6)
  - ALOPECIA [None]
  - ARTHRITIS [None]
  - CEREBROVASCULAR ACCIDENT [None]
  - FALL [None]
  - GLYCOSYLATED HAEMOGLOBIN INCREASED [None]
  - WEIGHT DECREASED [None]
